FAERS Safety Report 22143262 (Version 1)
Quarter: 2023Q1

REPORT INFORMATION
  Report Type: Spontaneous
  Country: US (occurrence: US)
  Receive Date: 20230327
  Receipt Date: 20230327
  Transmission Date: 20230418
  Serious: No
  Sender: FDA-Public Use
  Company Number: US-SA-SAC20230323001447

PATIENT
  Sex: Female

DRUGS (1)
  1. DUPIXENT [Suspect]
     Active Substance: DUPILUMAB
     Dosage: 300 MG, OTHER
     Route: 058

REACTIONS (7)
  - Paraesthesia [Unknown]
  - Swelling face [Unknown]
  - Feeling hot [Unknown]
  - Condition aggravated [Unknown]
  - Alcohol intolerance [Unknown]
  - Pruritus [Unknown]
  - Eye pruritus [Unknown]
